FAERS Safety Report 11315367 (Version 1)
Quarter: 2015Q3

REPORT INFORMATION
  Report Type: Spontaneous
  Country: ES (occurrence: ES)
  Receive Date: 20150727
  Receipt Date: 20150727
  Transmission Date: 20151125
  Serious: Yes (Other)
  Sender: FDA-Public Use
  Company Number: PHHY2015ES086901

PATIENT
  Age: 80 Year
  Sex: Male

DRUGS (1)
  1. ULTIBRO BREEZHALER [Suspect]
     Active Substance: GLYCOPYRRONIUM\INDACATEROL
     Indication: PRODUCT USED FOR UNKNOWN INDICATION
     Dosage: 1 DF, UNK
     Route: 055
     Dates: start: 20150302, end: 20150409

REACTIONS (3)
  - Tachycardia [Unknown]
  - Hypertension [Unknown]
  - Condition aggravated [Unknown]

NARRATIVE: CASE EVENT DATE: 201503
